FAERS Safety Report 9728443 (Version 1)
Quarter: 2013Q4

REPORT INFORMATION
  Report Type: Report from Study
  Country: US (occurrence: US)
  Receive Date: 20131204
  Receipt Date: 20131204
  Transmission Date: 20140711
  Serious: Yes (Hospitalization, Other)
  Sender: FDA-Public Use
  Company Number: US-ABBVIE-13P-163-1174241-00

PATIENT
  Age: 20 Year
  Sex: Female
  Weight: 48.58 kg

DRUGS (5)
  1. HUMIRA [Suspect]
     Indication: CROHN^S DISEASE
     Dosage: LOADING DOSE
     Dates: start: 201310, end: 201310
  2. HUMIRA [Suspect]
     Indication: CROHN^S DISEASE
     Dosage: SECOND DOSE
     Dates: start: 2013, end: 2013
  3. HUMIRA [Suspect]
     Dates: start: 2013
  4. PRENATAL VITAMINS [Concomitant]
     Indication: VITAMIN SUPPLEMENTATION
  5. IRON [Concomitant]
     Indication: ANAEMIA

REACTIONS (6)
  - Local swelling [Recovering/Resolving]
  - Thrombosis [Recovering/Resolving]
  - Muscle tightness [Recovering/Resolving]
  - Myalgia [Recovering/Resolving]
  - Haematochezia [Not Recovered/Not Resolved]
  - Crohn^s disease [Recovering/Resolving]
